FAERS Safety Report 19005291 (Version 4)
Quarter: 2021Q4

REPORT INFORMATION
  Report Type: Report from Study
  Country: US (occurrence: US)
  Receive Date: 20210313
  Receipt Date: 20211005
  Transmission Date: 20220303
  Serious: Yes (Hospitalization, Other)
  Sender: FDA-Public Use
  Company Number: US-TAKEDA-2021TUS015656

PATIENT
  Age: 15 Year
  Sex: Female
  Weight: 48.98 kg

DRUGS (20)
  1. CUVITRU [Suspect]
     Active Substance: HUMAN IMMUNOGLOBULIN G
     Indication: Immunodeficiency common variable
     Dosage: 7 GRAM, 2/WEEK
     Route: 058
     Dates: start: 20200212
  2. CUVITRU [Suspect]
     Active Substance: HUMAN IMMUNOGLOBULIN G
     Dosage: 7 GRAM, 2/WEEK
     Route: 058
     Dates: start: 20200212
  3. CUVITRU [Suspect]
     Active Substance: HUMAN IMMUNOGLOBULIN G
     Dosage: 7 GRAM, 2/WEEK
     Route: 058
     Dates: start: 20200212
  4. CUVITRU [Suspect]
     Active Substance: HUMAN IMMUNOGLOBULIN G
     Dosage: 7 UNK
     Route: 058
     Dates: start: 20200212
  5. ACETAMINOPHEN [Concomitant]
     Active Substance: ACETAMINOPHEN
  6. DIPHENHYDRAMINE [Concomitant]
     Active Substance: DIPHENHYDRAMINE
  7. IBUPROFEN [Concomitant]
     Active Substance: IBUPROFEN
  8. EPINEPHRINE [Concomitant]
     Active Substance: EPINEPHRINE
  9. PROAIR HFA [Concomitant]
     Active Substance: ALBUTEROL SULFATE
  10. ALBUTEROL SULFATE [Concomitant]
     Active Substance: ALBUTEROL SULFATE
  11. SINGULAIR [Concomitant]
     Active Substance: MONTELUKAST SODIUM
  12. ZYRTEC [Concomitant]
     Active Substance: CETIRIZINE HYDROCHLORIDE
  13. ZOLOFT [Concomitant]
     Active Substance: SERTRALINE HYDROCHLORIDE
  14. ADVAIR HFA [Concomitant]
     Active Substance: FLUTICASONE PROPIONATE\SALMETEROL XINAFOATE
  15. FLOVENT HFA [Concomitant]
     Active Substance: FLUTICASONE PROPIONATE
  16. OMNITROPE [Concomitant]
     Active Substance: SOMATROPIN
  17. PRILOSEC [Concomitant]
     Active Substance: OMEPRAZOLE MAGNESIUM
  18. AZELASTINE. [Concomitant]
     Active Substance: AZELASTINE HYDROCHLORIDE
  19. AMLODIPINE [Concomitant]
     Active Substance: AMLODIPINE BESYLATE
  20. AZELASTINE HYDROCHLORIDE [Concomitant]
     Active Substance: AZELASTINE HYDROCHLORIDE

REACTIONS (5)
  - Meningitis aseptic [Unknown]
  - Enterovirus infection [Unknown]
  - Nasopharyngitis [Unknown]
  - Respiratory syncytial virus infection [Unknown]
  - Asthma [Unknown]

NARRATIVE: CASE EVENT DATE: 20210826
